FAERS Safety Report 19819251 (Version 1)
Quarter: 2021Q3

REPORT INFORMATION
  Report Type: Spontaneous
  Country: ES (occurrence: ES)
  Receive Date: 20210913
  Receipt Date: 20210913
  Transmission Date: 20211014
  Serious: Yes (Hospitalization)
  Sender: FDA-Public Use
  Company Number: ES-AMGEN-ESPSP2021139655

PATIENT
  Age: 19 Month
  Sex: Female

DRUGS (1)
  1. NEUPOGEN [Suspect]
     Active Substance: FILGRASTIM
     Indication: NEUTROPENIA
     Dosage: 60 MCG (0.2 ML) AT 4PM FOR 3 DAYS
     Route: 042
     Dates: start: 20210225, end: 20210227

REACTIONS (1)
  - Venoocclusive disease [Recovered/Resolved with Sequelae]

NARRATIVE: CASE EVENT DATE: 20210301
